FAERS Safety Report 6767402-X (Version None)
Quarter: 2010Q2

REPORT INFORMATION
  Report Type: 
  Country: None (occurrence: None)
  Receive Date: 20100611
  Receipt Date: 20100611
  Transmission Date: 20101027
  Serious: Yes (Death)
  Sender: FDA-Public Use
  Company Number: None

PATIENT
  Age: 33 Year
  Sex: Female
  Weight: 84.369 kg

DRUGS (5)
  1. YAZ [Suspect]
     Indication: ACNE
     Dates: start: 20090311, end: 20091016
  2. LEXAPRO [Concomitant]
  3. SOLODYN [Concomitant]
  4. FLUTICASONE [Concomitant]
  5. BUPROPION HCL [Concomitant]

REACTIONS (4)
  - AGONAL RHYTHM [None]
  - DEEP VEIN THROMBOSIS [None]
  - ELECTROMECHANICAL DISSOCIATION [None]
  - PULMONARY EMBOLISM [None]
